FAERS Safety Report 13795910 (Version 2)
Quarter: 2017Q3

REPORT INFORMATION
  Report Type: Spontaneous
  Country: US (occurrence: US)
  Receive Date: 20170726
  Receipt Date: 20170818
  Transmission Date: 20171127
  Serious: No
  Sender: FDA-Public Use
  Company Number: US-ASTRAZENECA-2017SE75685

PATIENT
  Sex: Female
  Weight: 87.1 kg

DRUGS (1)
  1. BYDUREON [Suspect]
     Active Substance: EXENATIDE
     Indication: TYPE 2 DIABETES MELLITUS
     Route: 058
     Dates: start: 20170615

REACTIONS (4)
  - Injection site pruritus [Unknown]
  - Injection site mass [Unknown]
  - Stress [Unknown]
  - Product quality issue [Unknown]
